FAERS Safety Report 7954194-1 (Version None)
Quarter: 2011Q4

REPORT INFORMATION
  Report Type: 
  Country: None (occurrence: None)
  Receive Date: 20111202
  Receipt Date: 20111129
  Transmission Date: 20120403
  Serious: Yes (Other)
  Sender: FDA-Public Use
  Company Number: US-ROCHE-790781

PATIENT
  Sex: Female
  Weight: 86.26 kg

DRUGS (3)
  1. ACCUTANE [Suspect]
     Indication: PRODUCT USED FOR UNKNOWN INDICATION
     Dosage: 20 MG AND 10 MG EVERY MORNING AND 40 MG EVERY EVENING
     Route: 048
     Dates: start: 19950211, end: 19950719
  2. ASPIRIN [Concomitant]
     Route: 065
  3. ACCUTANE [Suspect]
     Route: 048
     Dates: start: 20060410, end: 20060930

REACTIONS (8)
  - CHEILITIS [None]
  - DRY SKIN [None]
  - INFLAMMATORY BOWEL DISEASE [None]
  - HAEMORRHOIDS [None]
  - COLITIS ULCERATIVE [None]
  - EMOTIONAL DISTRESS [None]
  - LIP DRY [None]
  - ANXIETY [None]
